FAERS Safety Report 17151245 (Version 1)
Quarter: 2019Q4

REPORT INFORMATION
  Report Type: Spontaneous
  Country: US (occurrence: US)
  Receive Date: 20191213
  Receipt Date: 20191213
  Transmission Date: 20200122
  Serious: No
  Sender: FDA-Public Use
  Company Number: US-PFIZER INC-2019538800

PATIENT
  Age: 75 Year
  Sex: Female

DRUGS (4)
  1. METHOTREXATE SODIUM. [Suspect]
     Active Substance: METHOTREXATE SODIUM
     Indication: ARTHROPATHY
     Dosage: 25 MG, WEEKLY
  2. FOLIC ACID. [Suspect]
     Active Substance: FOLIC ACID
     Indication: ARTHROPATHY
     Dosage: UNK
  3. METHOTREXATE SODIUM. [Suspect]
     Active Substance: METHOTREXATE SODIUM
     Indication: RASH
  4. FOLIC ACID. [Suspect]
     Active Substance: FOLIC ACID
     Indication: RASH

REACTIONS (2)
  - Drug ineffective [Unknown]
  - Anaemia [Recovered/Resolved]
